FAERS Safety Report 25755201 (Version 1)
Quarter: 2025Q3

REPORT INFORMATION
  Report Type: Spontaneous
  Country: CN (occurrence: CN)
  Receive Date: 20250903
  Receipt Date: 20250903
  Transmission Date: 20251020
  Serious: Yes (Hospitalization, Other)
  Sender: BAXTER
  Company Number: None

PATIENT
  Age: 59 Year
  Sex: Female
  Weight: 57 kg

DRUGS (6)
  1. CYCLOPHOSPHAMIDE [Suspect]
     Active Substance: CYCLOPHOSPHAMIDE
     Indication: Invasive ductal breast carcinoma
     Dosage: 900 MG, QD+ 0.9% SODIUM CHLORIDE INJECTION 250ML
     Route: 041
     Dates: start: 20250804, end: 20250804
  2. EPIRUBICIN HYDROCHLORIDE [Suspect]
     Active Substance: EPIRUBICIN HYDROCHLORIDE
     Indication: Invasive ductal breast carcinoma
     Dosage: 135 MG, QD+ 0.9% SODIUM CHLORIDE INJECTION 250ML
     Route: 041
     Dates: start: 20250804, end: 20250804
  3. SODIUM CHLORIDE [Suspect]
     Active Substance: SODIUM CHLORIDE
     Indication: Medication dilution
     Dosage: 250 ML, QD+ EPIRUBICIN HYDROCHLORIDE FOR INJECTION 135MG
     Route: 041
     Dates: start: 20250804, end: 20250804
  4. SODIUM CHLORIDE [Suspect]
     Active Substance: SODIUM CHLORIDE
     Dosage: 250 ML, QD+ CYCLOPHOSPHAMIDE FOR INJECTION 900MG
     Route: 041
     Dates: start: 20250804, end: 20250804
  5. ANF-RHO [Concomitant]
     Active Substance: ANF-RHO
     Indication: White blood cell count decreased
     Route: 058
     Dates: start: 20250806
  6. ANF-RHO [Concomitant]
     Active Substance: ANF-RHO
     Indication: Prophylaxis

REACTIONS (4)
  - Hyperpyrexia [Recovering/Resolving]
  - Temperature intolerance [Recovering/Resolving]
  - Myelosuppression [Recovering/Resolving]
  - Aeromonas infection [Unknown]

NARRATIVE: CASE EVENT DATE: 20250811
